FAERS Safety Report 7687426 (Version 1)
Quarter: 2020Q3

REPORT INFORMATION
  Report Type: Spontaneous
  Country: AU (occurrence: AU)
  Receive Date: 20101130
  Receipt Date: 20101130
  Transmission Date: 20201104
  Serious: Yes (Other)
  Sender: FDA-Public Use
  Company Number: AU-ROCHE-742212

PATIENT

DRUGS (2)
  1. AVASTIN [Suspect]
     Active Substance: BEVACIZUMAB
     Route: 065
  2. CEDIRANIB. [Suspect]
     Active Substance: CEDIRANIB
     Route: 065

REACTIONS (2)
  - Thyroid disorder [Unknown]
  - Infusion related reaction [Unknown]
